FAERS Safety Report 7113353-0 (Version None)
Quarter: 2010Q4

REPORT INFORMATION
  Report Type: 
  Country: None (occurrence: None)
  Receive Date: 20101119
  Receipt Date: 20101110
  Transmission Date: 20110411
  Serious: Yes (Other)
  Sender: FDA-Public Use
  Company Number: US-JNJFOC-20101104200

PATIENT
  Sex: Female

DRUGS (1)
  1. ULTRAM [Suspect]
     Indication: SCIATICA
     Dosage: 5X 100 MG, ONE OR TWO EVERY 4 TO 6 HOURS
     Route: 048

REACTIONS (2)
  - CONCUSSION [None]
  - ROAD TRAFFIC ACCIDENT [None]
